FAERS Safety Report 17986028 (Version 1)
Quarter: 2020Q3

REPORT INFORMATION
  Report Type: Spontaneous
  Country: DE (occurrence: DE)
  Receive Date: 20200706
  Receipt Date: 20200706
  Transmission Date: 20201103
  Serious: Yes (Congenital Anomaly, Other)
  Sender: FDA-Public Use
  Company Number: DE-MYLANLABS-2020M1059942

PATIENT
  Age: 1 Day
  Sex: Male
  Weight: 1.88 kg

DRUGS (2)
  1. QUETIAPINE. [Concomitant]
     Active Substance: QUETIAPINE
     Indication: DEPRESSION
     Dosage: 25 [MG/D (BIS 12.5, BEI BEDARF) ]/ ONLY IF REQUIRED
     Route: 064
  2. FLUOXETINE [Suspect]
     Active Substance: FLUOXETINE HYDROCHLORIDE
     Indication: DEPRESSION
     Dosage: 20 [MG/D (BIS 10) ]
     Route: 064
     Dates: start: 20181106, end: 20190726

REACTIONS (5)
  - Foetal exposure during pregnancy [Recovered/Resolved]
  - Respiratory disorder neonatal [Recovered/Resolved]
  - Hypospadias [Unknown]
  - Small for dates baby [Unknown]
  - Hypoglycaemia neonatal [Recovered/Resolved]

NARRATIVE: CASE EVENT DATE: 20190726
